FAERS Safety Report 14112132 (Version 1)
Quarter: 2017Q4

REPORT INFORMATION
  Report Type: Spontaneous
  Country: US (occurrence: US)
  Receive Date: 20171020
  Receipt Date: 20171020
  Transmission Date: 20180321
  Serious: Yes (Other)
  Sender: FDA-Public Use
  Company Number: None

PATIENT
  Sex: Male
  Weight: 113.4 kg

DRUGS (10)
  1. HUMULIN N [Concomitant]
     Active Substance: INSULIN HUMAN
  2. LISINOPRIL. [Concomitant]
     Active Substance: LISINOPRIL
  3. HUMULIN R [Concomitant]
     Active Substance: INSULIN HUMAN
  4. XTANDI [Concomitant]
     Active Substance: ENZALUTAMIDE
  5. ZYTIGA [Suspect]
     Active Substance: ABIRATERONE ACETATE
     Indication: PROSTATE CANCER
     Route: 048
     Dates: start: 20160711, end: 20171020
  6. DILTIAZEM. [Concomitant]
     Active Substance: DILTIAZEM
  7. PREDNISONE. [Concomitant]
     Active Substance: PREDNISONE
  8. METFORMIN [Concomitant]
     Active Substance: METFORMIN HYDROCHLORIDE
  9. ASPIRIN. [Concomitant]
     Active Substance: ASPIRIN
  10. CENTRUM SILVER [Concomitant]
     Active Substance: MINERALS\VITAMINS

REACTIONS (1)
  - Disease progression [None]
